FAERS Safety Report 7952481-4 (Version None)
Quarter: 2011Q4

REPORT INFORMATION
  Report Type: 
  Country: None (occurrence: None)
  Receive Date: 20111201
  Receipt Date: 20111122
  Transmission Date: 20120403
  Serious: Yes (Death)
  Sender: FDA-Public Use
  Company Number: IT-CELGENEUS-083-21880-11113309

PATIENT

DRUGS (2)
  1. DEXAMETHASONE [Concomitant]
     Indication: LYMPHOMA
     Route: 065
  2. REVLIMID [Suspect]
     Indication: LYMPHOMA
     Dosage: 25 MILLIGRAM
     Route: 048
     Dates: start: 20090612, end: 20090702

REACTIONS (2)
  - LYMPHOMA TRANSFORMATION [None]
  - NEOPLASM PROGRESSION [None]
